FAERS Safety Report 7745576-1 (Version None)
Quarter: 2011Q3

REPORT INFORMATION
  Report Type: 
  Country: None (occurrence: None)
  Receive Date: 20110913
  Receipt Date: 20110830
  Transmission Date: 20111222
  Serious: Yes (Hospitalization)
  Sender: FDA-Public Use
  Company Number: US-ELI_LILLY_AND_COMPANY-US201009007021

PATIENT
  Sex: Male

DRUGS (9)
  1. FORTEO [Suspect]
     Indication: OSTEOPOROSIS
     Dosage: 20 UG, DAILY (1/D)
     Route: 065
     Dates: start: 20100915
  2. SIMVASTATIN [Concomitant]
     Dosage: 40 MG, UNK
  3. FORTEO [Suspect]
     Dosage: 20 UG, DAILY (1/D)
     Route: 065
  4. FORTEO [Suspect]
     Dosage: 20 UG, DAILY (1/D)
     Route: 065
  5. FORTEO [Suspect]
     Dosage: 20 UG, QD
  6. HYTRIN [Concomitant]
  7. FORTEO [Suspect]
     Dosage: 20 UG, DAILY (1/D)
     Route: 065
  8. FORTEO [Suspect]
     Dosage: 20 UG, QD
     Dates: start: 20110827, end: 20110830
  9. AVODART [Concomitant]
     Dosage: 0.5 MG, UNK

REACTIONS (14)
  - INJECTION SITE DISCOLOURATION [None]
  - BACK PAIN [None]
  - TOE OPERATION [None]
  - INJECTION SITE HAEMATOMA [None]
  - ABDOMINAL PAIN [None]
  - BLOOD PRESSURE DECREASED [None]
  - SKIN DISORDER [None]
  - ARTHRALGIA [None]
  - FATIGUE [None]
  - MUSCLE SPASMS [None]
  - KIDNEY INFECTION [None]
  - RASH MACULAR [None]
  - DIARRHOEA [None]
  - INJECTION SITE ERYTHEMA [None]
